FAERS Safety Report 8341611-0 (Version None)
Quarter: 2012Q2

REPORT INFORMATION
  Report Type: 
  Country: None (occurrence: None)
  Receive Date: 20120507
  Receipt Date: 20120501
  Transmission Date: 20120825
  Serious: No
  Sender: FDA-Public Use
  Company Number: US-B.I. PHARMACEUTICALS,INC./RIDGEFIELD-2012-BP-09899BP

PATIENT
  Sex: Female

DRUGS (11)
  1. SPIRIVA [Suspect]
     Indication: BRONCHITIS CHRONIC
     Dosage: 18 MCG
     Route: 055
     Dates: start: 20040101
  2. MULTI-VITAMIN [Concomitant]
     Indication: PROPHYLAXIS
     Route: 048
  3. CYMBALTA [Concomitant]
     Route: 048
  4. FLAXSEED OIL [Concomitant]
     Indication: PROPHYLAXIS
     Route: 048
  5. VITAMIN B-12 [Concomitant]
     Indication: PROPHYLAXIS
     Route: 048
  6. DAYQUIL SINUS [Concomitant]
     Indication: SINUS CONGESTION
     Route: 048
     Dates: start: 20060101
  7. ALBUTEROL [Concomitant]
     Indication: BRONCHITIS CHRONIC
     Route: 055
  8. XANAX [Concomitant]
     Indication: ANXIETY
     Route: 048
  9. SUDAFED 12 HOUR [Suspect]
     Indication: SINUS CONGESTION
     Dates: start: 20040101, end: 20060101
  10. HYDROCODONE COUGH SYRUP [Concomitant]
     Indication: LUNG DISORDER
     Route: 048
  11. VITAMIN B6 [Concomitant]
     Indication: PROPHYLAXIS
     Route: 048

REACTIONS (3)
  - EYE PRURITUS [None]
  - DRY EYE [None]
  - OCULAR HYPERAEMIA [None]
